FAERS Safety Report 13379763 (Version 2)
Quarter: 2017Q2

REPORT INFORMATION
  Report Type: Spontaneous
  Country: AU (occurrence: AU)
  Receive Date: 20170328
  Receipt Date: 20170411
  Transmission Date: 20170830
  Serious: Yes (Hospitalization)
  Sender: FDA-Public Use
  Company Number: AU-CUMBERLAND PHARMACEUTICALS INC.-1064750

PATIENT
  Sex: Female

DRUGS (1)
  1. CALDOLOR [Suspect]
     Active Substance: IBUPROFEN
     Route: 042

REACTIONS (1)
  - Deep vein thrombosis [Unknown]
